FAERS Safety Report 21903539 (Version 1)
Quarter: 2023Q1

REPORT INFORMATION
  Report Type: Spontaneous
  Country: US (occurrence: US)
  Receive Date: 20230124
  Receipt Date: 20230124
  Transmission Date: 20230418
  Serious: No
  Sender: FDA-Public Use
  Company Number: US-009507513-2301USA007670

PATIENT
  Sex: Male

DRUGS (7)
  1. NOXAFIL [Suspect]
     Active Substance: POSACONAZOLE
     Indication: Penicillium infection
     Route: 048
  2. PEG/L-ASPARAGINASE [Concomitant]
     Active Substance: PEGASPARGASE
  3. VINCRISTINE [Concomitant]
     Active Substance: VINCRISTINE
  4. DEXAMETHASONE [Concomitant]
     Active Substance: DEXAMETHASONE
  5. METHOTREXATE [Concomitant]
     Active Substance: METHOTREXATE
     Route: 037
  6. CYTARABINE [Concomitant]
     Active Substance: CYTARABINE
  7. AMPHOTERICIN B [Concomitant]
     Active Substance: AMPHOTERICIN B

REACTIONS (1)
  - Off label use [Unknown]
